FAERS Safety Report 7182950-9 (Version None)
Quarter: 2010Q4

REPORT INFORMATION
  Report Type: 
  Country: None (occurrence: None)
  Receive Date: 20101210
  Receipt Date: 20101201
  Transmission Date: 20110411
  Serious: Yes (Other)
  Sender: FDA-Public Use
  Company Number: DKLU1066939

PATIENT
  Age: 25 Month
  Sex: Male

DRUGS (6)
  1. SABRIL [Suspect]
     Indication: INFANTILE SPASMS
  2. PHENOBARBITAL TAB [Concomitant]
  3. PHENYTOIN [Concomitant]
  4. CARBAMAZEPINE [Concomitant]
  5. VALPROIC ACID [Concomitant]
  6. GABAPENTIN [Concomitant]

REACTIONS (4)
  - OPTIC DISC DISORDER [None]
  - RETINAL DISORDER [None]
  - RETINAL TOXICITY [None]
  - VISUAL ACUITY REDUCED [None]
